FAERS Safety Report 20393626 (Version 2)
Quarter: 2022Q1

REPORT INFORMATION
  Report Type: Spontaneous
  Country: JP (occurrence: JP)
  Receive Date: 20220128
  Receipt Date: 20220214
  Transmission Date: 20220423
  Serious: Yes (Other)
  Sender: FDA-Public Use
  Company Number: JP-ABBVIE-21K-087-4130235-00

PATIENT
  Age: 25 Year
  Sex: Male
  Weight: 54.6 kg

DRUGS (13)
  1. LUVOX [Interacting]
     Active Substance: FLUVOXAMINE MALEATE
     Indication: Autism spectrum disorder
     Route: 048
     Dates: start: 20200811
  2. SEVOFLURANE [Suspect]
     Active Substance: SEVOFLURANE
     Indication: Maintenance of anaesthesia
     Dosage: DOSE: 1.0 - 3.0%
     Route: 055
     Dates: start: 20210210, end: 20210210
  3. SEVOFLURANE [Suspect]
     Active Substance: SEVOFLURANE
     Indication: Induction of anaesthesia
     Route: 065
     Dates: start: 20210330
  4. PROPOFOL [Interacting]
     Active Substance: PROPOFOL
     Indication: Autism spectrum disorder
     Route: 042
     Dates: start: 20210210
  5. PROPOFOL [Interacting]
     Active Substance: PROPOFOL
     Dosage: 8-20MG
     Route: 041
     Dates: start: 20210330
  6. TEGRETOL [Interacting]
     Active Substance: CARBAMAZEPINE
     Indication: Epilepsy
     Route: 048
     Dates: start: 20130809
  7. ABILIFY [Interacting]
     Active Substance: ARIPIPRAZOLE
     Indication: Antipsychotic therapy
     Route: 048
     Dates: start: 20130809
  8. RIVOTRIL [Interacting]
     Active Substance: CLONAZEPAM
     Indication: Epilepsy
     Route: 048
     Dates: start: 20130809
  9. ROCURONIUM BROMIDE [Concomitant]
     Active Substance: ROCURONIUM BROMIDE
     Indication: Induction of anaesthesia
  10. ROCURONIUM BROMIDE [Concomitant]
     Active Substance: ROCURONIUM BROMIDE
     Indication: Muscle relaxant therapy
  11. BRIDION [Concomitant]
     Active Substance: SUGAMMADEX
     Indication: Hypotonia
     Route: 042
     Dates: start: 20210210, end: 20210210
  12. AMPICILLIN [Concomitant]
     Active Substance: AMPICILLIN
     Indication: Infection prophylaxis
     Route: 041
     Dates: start: 20210210, end: 20210210
  13. ACETAMINOPHEN [Concomitant]
     Active Substance: ACETAMINOPHEN
     Indication: Postoperative analgesia
     Route: 041
     Dates: start: 20210210, end: 20210210

REACTIONS (9)
  - Delayed recovery from anaesthesia [Recovered/Resolved]
  - Delayed recovery from anaesthesia [Recovered/Resolved]
  - Drug interaction [Recovered/Resolved]
  - Off label use [Unknown]
  - Drug interaction [Recovered/Resolved]
  - Blood pressure decreased [Recovered/Resolved]
  - Respiratory depression [Recovered/Resolved]
  - Bradycardia [Recovered/Resolved]
  - Respiratory depression [Recovered/Resolved]

NARRATIVE: CASE EVENT DATE: 20210210
